FAERS Safety Report 4409737-1 (Version None)
Quarter: 2004Q3

REPORT INFORMATION
  Report Type: 
  Country: None (occurrence: None)
  Receive Date: 20040728
  Receipt Date: 20040720
  Transmission Date: 20050211
  Serious: Yes (Other)
  Sender: FDA-Public Use
  Company Number: 200415484US

PATIENT
  Sex: Male

DRUGS (1)
  1. NASACORT [Suspect]
     Dosage: DOSE: AS DIRECTED
     Route: 045

REACTIONS (2)
  - NASAL SEPTUM DEVIATION [None]
  - NASAL SEPTUM PERFORATION [None]
